FAERS Safety Report 20126103 (Version 1)
Quarter: 2021Q4

REPORT INFORMATION
  Report Type: Spontaneous
  Country: US (occurrence: None)
  Receive Date: 20211127
  Receipt Date: 20211127
  Transmission Date: 20220303
  Serious: No
  Sender: FDA-Public Use
  Company Number: None

PATIENT

DRUGS (1)
  1. SECRET ANTIPERSPIRANT POWDER FRESH [Suspect]
     Active Substance: ALUMINUM CHLOROHYDRATE
     Dosage: FREQUENCY : TWICE A DAY;?
     Route: 061

REACTIONS (3)
  - Pruritus [None]
  - Skin irritation [None]
  - Product odour abnormal [None]
